FAERS Safety Report 11984513 (Version 1)
Quarter: 2016Q1

REPORT INFORMATION
  Report Type: Spontaneous
  Country: IT (occurrence: IT)
  Receive Date: 20160201
  Receipt Date: 20160201
  Transmission Date: 20160526
  Serious: Yes (Other)
  Sender: FDA-Public Use
  Company Number: PHHY2015IT073022

PATIENT
  Age: 58 Year
  Sex: Male

DRUGS (2)
  1. OXALIPLATIN SANDOZ [Suspect]
     Active Substance: OXALIPLATIN
     Indication: COLON CANCER
     Dosage: 185 MG, UNK, CYCLIC NOS
     Route: 042
     Dates: start: 20150204, end: 20150518
  2. CAPECITABINE MEDAC [Concomitant]
     Active Substance: CAPECITABINE
     Indication: COLON CANCER
     Dosage: 3300 MG, UNK
     Route: 048
     Dates: start: 20150204, end: 20150518

REACTIONS (2)
  - Neurotoxicity [Recovered/Resolved with Sequelae]
  - Infusion site anaesthesia [Recovered/Resolved with Sequelae]

NARRATIVE: CASE EVENT DATE: 20150522
